FAERS Safety Report 6542759-3 (Version None)
Quarter: 2010Q1

REPORT INFORMATION
  Report Type: 
  Country: None (occurrence: None)
  Receive Date: 20100114
  Receipt Date: 20100104
  Transmission Date: 20100710
  Serious: No
  Sender: FDA-Public Use
  Company Number: 467188

PATIENT
  Age: 95 Year
  Sex: Female

DRUGS (1)
  1. HEPARIN [Suspect]
     Indication: CARDIAC DISORDER
     Dosage: 400 ML, INTRAVENOUS
     Route: 042
     Dates: start: 20091226, end: 20091227

REACTIONS (5)
  - ACTIVATED PARTIAL THROMBOPLASTIN TIME PROLONGED [None]
  - DEVICE MALFUNCTION [None]
  - INFUSION SITE HAEMATOMA [None]
  - MEDICAL DEVICE COMPLICATION [None]
  - OVERDOSE [None]
